FAERS Safety Report 11781962 (Version 1)
Quarter: 2015Q4

REPORT INFORMATION
  Report Type: Spontaneous
  Country: US (occurrence: US)
  Receive Date: 20151126
  Receipt Date: 20151126
  Transmission Date: 20160305
  Serious: No
  Sender: FDA-Public Use
  Company Number: US-TAKEDA-2015TUS016917

PATIENT
  Age: 66 Year
  Sex: Female
  Weight: 53.97 kg

DRUGS (8)
  1. GENERIC FOR VALIUM [Concomitant]
     Active Substance: DIAZEPAM
     Indication: MUSCULOSKELETAL DISCOMFORT
  2. BRINTELLIX [Suspect]
     Active Substance: VORTIOXETINE HYDROBROMIDE
     Dosage: 2.5 MG, QD
     Route: 048
     Dates: start: 20151012, end: 20151016
  3. GENERIC FOR VALIUM [Concomitant]
     Active Substance: DIAZEPAM
     Indication: AGITATION
     Dosage: 2.5 MG, UNK
     Route: 048
  4. BRINTELLIX [Suspect]
     Active Substance: VORTIOXETINE HYDROBROMIDE
     Indication: PRODUCT USED FOR UNKNOWN INDICATION
     Dosage: 5 MG, QD
     Route: 048
     Dates: start: 20151010, end: 20151011
  5. GENERIC FOR SYNTHROID [Concomitant]
     Indication: THYROID DISORDER
     Dosage: 75 ?G, UNK
     Route: 048
  6. GENERIC FOR VALIUM [Concomitant]
     Active Substance: DIAZEPAM
     Indication: SLEEP DISORDER
  7. BRINTELLIX [Suspect]
     Active Substance: VORTIOXETINE HYDROBROMIDE
     Dosage: 5 MG, QD
     Route: 048
     Dates: start: 20151017, end: 20151112
  8. GENERIC FOR LIPITOR [Concomitant]
     Indication: BLOOD CHOLESTEROL ABNORMAL
     Dosage: 20 MG, UNK
     Route: 048

REACTIONS (3)
  - Tremor [Not Recovered/Not Resolved]
  - Drug prescribing error [Recovered/Resolved]
  - Feeling jittery [Not Recovered/Not Resolved]

NARRATIVE: CASE EVENT DATE: 201510
